FAERS Safety Report 11181163 (Version 4)
Quarter: 2015Q4

REPORT INFORMATION
  Report Type: Report from Study
  Country: US (occurrence: US)
  Receive Date: 20150611
  Receipt Date: 20151220
  Transmission Date: 20160304
  Serious: Yes (Hospitalization)
  Sender: FDA-Public Use
  Company Number: US-UCBSA-2015018571

PATIENT
  Age: 47 Year
  Sex: Female
  Weight: 81.6 kg

DRUGS (1)
  1. LEVETIRACETAM. [Suspect]
     Active Substance: LEVETIRACETAM
     Indication: GENERALISED TONIC-CLONIC SEIZURE
     Dosage: 500 MG (2 TAB IN AM AND 1 TABLET IN THE PM)
     Route: 048
     Dates: start: 2010

REACTIONS (2)
  - Meningitis [Recovered/Resolved]
  - Astrocytoma [Recovered/Resolved]

NARRATIVE: CASE EVENT DATE: 20141207
